FAERS Safety Report 14592109 (Version 1)
Quarter: 2018Q1

REPORT INFORMATION
  Report Type: Spontaneous
  Country: US (occurrence: US)
  Receive Date: 20180301
  Receipt Date: 20180301
  Transmission Date: 20180509
  Serious: Yes (Hospitalization)
  Sender: FDA-Public Use
  Company Number: None

PATIENT
  Age: 53 Year
  Sex: Female

DRUGS (12)
  1. GENERIC LEXAPRO [Concomitant]
     Active Substance: ESCITALOPRAM OXALATE
  2. OMEGA 3 [Concomitant]
     Active Substance: OMEGA-3 FATTY ACIDS
  3. GARLIC OIL [Concomitant]
     Active Substance: GARLIC OIL
  4. EFFIENT [Concomitant]
     Active Substance: PRASUGREL HYDROCHLORIDE
  5. WELLBUTRIN [Concomitant]
     Active Substance: BUPROPION HYDROCHLORIDE
  6. ASPIRIN. [Suspect]
     Active Substance: ASPIRIN
     Indication: THROMBOSIS PROPHYLAXIS
     Dosage: ?          QUANTITY:2 TABLET(S);?
     Route: 048
  7. MULTI VITAMIN [Concomitant]
     Active Substance: VITAMINS
  8. SAFETY COATED ASPIRIN 81 MG [Suspect]
     Active Substance: ASPIRIN
     Indication: THROMBOSIS PROPHYLAXIS
     Dosage: ?          QUANTITY:2 TABLET(S);?
     Route: 048
     Dates: start: 20171209, end: 20180301
  9. COQ10 [Concomitant]
     Active Substance: UBIDECARENONE
  10. PLAVIX [Concomitant]
     Active Substance: CLOPIDOGREL BISULFATE
  11. PROBIOTIC [Concomitant]
     Active Substance: PROBIOTICS NOS
  12. MAGNESIUM [Concomitant]
     Active Substance: MAGNESIUM

REACTIONS (12)
  - Chest pain [None]
  - Blood pressure increased [None]
  - Back pain [None]
  - Asthenia [None]
  - Toxicity to various agents [None]
  - Hypersensitivity [None]
  - Arthralgia [None]
  - Cardiac flutter [None]
  - Blepharospasm [None]
  - Pain [None]
  - Extra dose administered [None]
  - Therapy change [None]

NARRATIVE: CASE EVENT DATE: 20180218
